FAERS Safety Report 5123341-1 (Version None)
Quarter: 2006Q4

REPORT INFORMATION
  Report Type: 
  Country: None (occurrence: None)
  Receive Date: 20061005
  Receipt Date: 20060922
  Transmission Date: 20070319
  Serious: Yes (Life-Threatening)
  Sender: FDA-Public Use
  Company Number: 2006-148268-NL

PATIENT
  Age: 36 Year
  Sex: Female

DRUGS (1)
  1. MARVELON [Suspect]
     Indication: CONTRACEPTION
     Dosage: DF
     Route: 048
     Dates: start: 20060601, end: 20060801

REACTIONS (3)
  - ANAPHYLACTIC REACTION [None]
  - PULMONARY EMBOLISM [None]
  - RESPIRATORY ARREST [None]
